FAERS Safety Report 18625526 (Version 1)
Quarter: 2020Q4

REPORT INFORMATION
  Report Type: Spontaneous
  Country: FR (occurrence: FR)
  Receive Date: 20201217
  Receipt Date: 20201217
  Transmission Date: 20210114
  Serious: Yes (Hospitalization, Other)
  Sender: FDA-Public Use
  Company Number: FR-AUROBINDO-AUR-APL-2020-060839

PATIENT
  Age: 72 Year
  Sex: Male
  Weight: 82 kg

DRUGS (2)
  1. LINEZOLIDE KABI [Suspect]
     Active Substance: LINEZOLID
     Indication: LUNG DISORDER
     Dosage: 1800 MILLIGRAM, ONCE A DAY
     Route: 042
     Dates: start: 20201027, end: 20201030
  2. MEROPENEM ARROW 1000 MG POWDER FOR SOLUTION FOR INJECION OR INFUSION [Suspect]
     Active Substance: MEROPENEM
     Indication: LUNG DISORDER
     Dosage: 4 GRAM, 3 TIMES A DAY
     Route: 042
     Dates: start: 20201027, end: 20201102

REACTIONS (2)
  - Hepatocellular injury [Not Recovered/Not Resolved]
  - Cholestasis [Not Recovered/Not Resolved]

NARRATIVE: CASE EVENT DATE: 20201102
